FAERS Safety Report 10342801 (Version 1)
Quarter: 2014Q3

REPORT INFORMATION
  Report Type: Spontaneous
  Country: FR (occurrence: FR)
  Receive Date: 20140725
  Receipt Date: 20140725
  Transmission Date: 20150326
  Serious: Yes (Hospitalization)
  Sender: FDA-Public Use
  Company Number: FR-PFIZER INC-2014207445

PATIENT
  Age: 79 Year
  Sex: Female

DRUGS (5)
  1. LEVOTHYROX [Concomitant]
     Active Substance: LEVOTHYROXINE
     Indication: HYPOTHYROIDISM
  2. DAFALGAN [Concomitant]
     Active Substance: ACETAMINOPHEN
  3. STILNOX [Concomitant]
     Active Substance: ZOLPIDEM TARTRATE
  4. CORDARONE [Suspect]
     Active Substance: AMIODARONE HYDROCHLORIDE
     Indication: ATRIAL FIBRILLATION
     Dosage: UNK
     Route: 048
  5. PREVISCAN [Suspect]
     Active Substance: FLUINDIONE
     Indication: ATRIAL FIBRILLATION
     Dosage: UNK
     Route: 048
     Dates: end: 20140412

REACTIONS (5)
  - Overdose [Unknown]
  - Haematuria [Recovered/Resolved]
  - International normalised ratio increased [Recovered/Resolved]
  - Anaemia [Recovering/Resolving]
  - Haematoma [Recovered/Resolved]

NARRATIVE: CASE EVENT DATE: 20140402
